FAERS Safety Report 7982697-2 (Version None)
Quarter: 2011Q4

REPORT INFORMATION
  Report Type: 
  Country: None (occurrence: None)
  Receive Date: 20111215
  Receipt Date: 20111205
  Transmission Date: 20120403
  Serious: Yes (Hospitalization)
  Sender: FDA-Public Use
  Company Number: CO-ROCHE-1021002

PATIENT
  Sex: Female

DRUGS (3)
  1. XOLAIR [Suspect]
     Indication: ASTHMA
     Route: 058
     Dates: start: 20111110
  2. ALBUTEROL SULFATE AUTOHALER [Concomitant]
  3. MONTELUKAST SODIUM [Concomitant]

REACTIONS (1)
  - ASTHMATIC CRISIS [None]
